FAERS Safety Report 8629591 (Version 2)
Quarter: 2012Q4

REPORT INFORMATION
  Report Type: Report from Study
  Country: GB (occurrence: GB)
  Receive Date: 20120622
  Receipt Date: 20121130
  Transmission Date: 20130627
  Serious: Yes (Hospitalization)
  Sender: FDA-Public Use
  Company Number: GB-MPIJNJ-2012-04288

PATIENT

DRUGS (2)
  1. VELCADE [Suspect]
     Indication: MULTIPLE MYELOMA
     Dosage: 1.3 mg/m2, UNK
     Route: 042
     Dates: start: 20120529, end: 20120608
  2. VELCADE [Suspect]
     Dosage: 2.2 mg, UNK
     Route: 042

REACTIONS (2)
  - Fall [Recovered/Resolved]
  - Epistaxis [Recovered/Resolved]
